FAERS Safety Report 17091607 (Version 1)
Quarter: 2019Q4

REPORT INFORMATION
  Report Type: Spontaneous
  Country: GB (occurrence: GB)
  Receive Date: 20191129
  Receipt Date: 20191129
  Transmission Date: 20200122
  Serious: Yes (Other)
  Sender: FDA-Public Use
  Company Number: GB-TEVA-2019-GB-1142250

PATIENT
  Age: 2 Year
  Sex: Female
  Weight: 8 kg

DRUGS (3)
  1. CLARITHROMYCIN. [Concomitant]
     Active Substance: CLARITHROMYCIN
     Dosage: 10 ML
     Dates: start: 20191018
  2. AMOXICILLIN. [Suspect]
     Active Substance: AMOXICILLIN
     Dosage: 15 ML; 250MG/5ML
     Dates: start: 20191015
  3. AMOXICILLIN. [Suspect]
     Active Substance: AMOXICILLIN
     Dosage: 250MG/5ML
     Dates: start: 20191018

REACTIONS (1)
  - Rash macular [Recovered/Resolved]

NARRATIVE: CASE EVENT DATE: 20191021
